FAERS Safety Report 7257487-9 (Version None)
Quarter: 2011Q1

REPORT INFORMATION
  Report Type: 
  Country: None (occurrence: None)
  Receive Date: 20110129
  Receipt Date: 20100520
  Transmission Date: 20110831
  Serious: No
  Sender: FDA-Public Use
  Company Number: US-ABBOTT-10P-163-0641696-00

PATIENT
  Sex: Female

DRUGS (7)
  1. ASPIRIN [Concomitant]
     Indication: PRODUCT USED FOR UNKNOWN INDICATION
  2. MULTIVITAMIN [Concomitant]
     Indication: VITAMIN SUPPLEMENTATION
  3. HUMIRA [Suspect]
     Indication: PSORIATIC ARTHROPATHY
     Dates: start: 20100409
  4. LUNESTA [Concomitant]
     Indication: SLEEP DISORDER THERAPY
  5. MUCINEX [Concomitant]
     Indication: HYPERSENSITIVITY
  6. FLONASE [Concomitant]
     Indication: HYPERSENSITIVITY
  7. METHOTREXATE [Concomitant]
     Indication: PSORIATIC ARTHROPATHY

REACTIONS (1)
  - WRONG TECHNIQUE IN DRUG USAGE PROCESS [None]
